FAERS Safety Report 21185066 (Version 1)
Quarter: 2022Q3

REPORT INFORMATION
  Report Type: Report from Study
  Country: IT (occurrence: IT)
  Receive Date: 20220808
  Receipt Date: 20220808
  Transmission Date: 20221027
  Serious: Yes (Death, Other)
  Sender: FDA-Public Use
  Company Number: IT-NOVARTISPH-NVSC2022IT140370

PATIENT
  Age: 75 Year
  Sex: Male
  Weight: 64 kg

DRUGS (2)
  1. TAFINLAR [Suspect]
     Active Substance: DABRAFENIB MESYLATE
     Indication: Anaplastic thyroid cancer
     Dosage: 75 MG (4/DIE)
     Route: 048
     Dates: start: 20211018, end: 20220607
  2. TRAMETINIB [Suspect]
     Active Substance: TRAMETINIB
     Indication: Anaplastic thyroid cancer
     Dosage: 2 MG (DIE)
     Route: 048
     Dates: start: 20211018, end: 20220607

REACTIONS (5)
  - Death [Fatal]
  - Anaplastic thyroid cancer [Unknown]
  - Malignant neoplasm progression [Unknown]
  - Paratracheal lymphadenopathy [Unknown]
  - Swelling [Unknown]

NARRATIVE: CASE EVENT DATE: 20220624
